FAERS Safety Report 6147475-8 (Version None)
Quarter: 2009Q2

REPORT INFORMATION
  Report Type: 
  Country: None (occurrence: None)
  Receive Date: 20090408
  Receipt Date: 20090407
  Transmission Date: 20091009
  Serious: Yes (Other)
  Sender: FDA-Public Use
  Company Number: GB-RB-013813-09

PATIENT
  Age: 56 Year
  Sex: Female

DRUGS (5)
  1. BUPRENORPHINE HYDROCHLORIDE [Suspect]
     Indication: SMOKING CESSATION THERAPY
     Route: 048
     Dates: start: 20090206, end: 20090304
  2. BUPRENORPHINE HYDROCHLORIDE [Suspect]
     Indication: OFF LABEL USE
     Route: 048
     Dates: start: 20090206, end: 20090304
  3. EMOLLIENT BASE [Concomitant]
     Indication: PSORIASIS
     Dosage: DOSING INFORMATION UNKNOWN.
     Route: 065
     Dates: start: 20081203
  4. CYCLOSPORINE [Concomitant]
     Indication: PSORIASIS
     Dosage: DOSING INFORMAITON UNKNOWN.
     Route: 065
     Dates: start: 20090211
  5. ALPHOSYL HC [Concomitant]
     Indication: PSORIASIS
     Dosage: DOSING INFORMATION UNKNOWN.
     Route: 065
     Dates: start: 20081203

REACTIONS (3)
  - INCORRECT ROUTE OF DRUG ADMINISTRATION [None]
  - OVERDOSE [None]
  - STEVENS-JOHNSON SYNDROME [None]
